FAERS Safety Report 13804366 (Version 1)
Quarter: 2017Q3

REPORT INFORMATION
  Report Type: Spontaneous
  Country: US (occurrence: US)
  Receive Date: 20170728
  Receipt Date: 20170728
  Transmission Date: 20171127
  Serious: No
  Sender: FDA-Public Use
  Company Number: US-ABBVIE-17P-163-1906154-00

PATIENT
  Sex: Female
  Weight: 57.43 kg

DRUGS (3)
  1. LACTULOSE. [Concomitant]
     Active Substance: LACTULOSE
     Indication: CONSTIPATION
     Dosage: USED TWICE A WEEK FOR A DURATION OF ABOUT 2 YEARS
     Route: 048
  2. SYNTHROID [Suspect]
     Active Substance: LEVOTHYROXINE SODIUM
     Indication: HYPOTHYROIDISM
     Route: 065
     Dates: start: 2015
  3. COLYTE [Concomitant]
     Active Substance: POLYETHYLENE GLYCOL 3350\POTASSIUM CHLORIDE\SODIUM BICARBONATE\SODIUM CHLORIDE\SODIUM SULFATE ANHYDROUS
     Indication: CONSTIPATION
     Dosage: TAKING FOR ABOUT 2 YEARS, ALWAYS TAKEN 8 HOURS BEFORE LEVOXYL
     Route: 048

REACTIONS (3)
  - Malaise [Unknown]
  - Abdominal distension [Unknown]
  - Nausea [Unknown]
